FAERS Safety Report 16391968 (Version 1)
Quarter: 2019Q2

REPORT INFORMATION
  Report Type: Spontaneous
  Country: CZ (occurrence: CZ)
  Receive Date: 20190605
  Receipt Date: 20190605
  Transmission Date: 20190711
  Serious: Yes (Hospitalization, Other)
  Sender: FDA-Public Use
  Company Number: CZ-AMGEN-CZESP2019085239

PATIENT
  Age: 69 Year
  Sex: Female

DRUGS (2)
  1. XGEVA [Suspect]
     Active Substance: DENOSUMAB
     Indication: METASTASES TO BONE
     Dosage: UNK
     Route: 065
     Dates: start: 201808
  2. CABOZANTINIB [Suspect]
     Active Substance: CABOZANTINIB
     Indication: METASTASES TO LUNG
     Dosage: 20 MILLIGRAM, QD
     Route: 065

REACTIONS (7)
  - Hypertension [Unknown]
  - Vomiting [Recovered/Resolved]
  - Chronic kidney disease [Unknown]
  - Hypocalcaemia [Unknown]
  - Urinary tract infection [Unknown]
  - Cardiac failure [Unknown]
  - Abdominal pain [Recovered/Resolved]

NARRATIVE: CASE EVENT DATE: 201811
